FAERS Safety Report 5398380-6 (Version None)
Quarter: 2007Q3

REPORT INFORMATION
  Report Type: 
  Country: None (occurrence: None)
  Receive Date: 20070726
  Receipt Date: 20070504
  Transmission Date: 20080115
  Serious: No
  Sender: FDA-Public Use
  Company Number: US-AMGEN-KDL223363

PATIENT
  Sex: Male

DRUGS (7)
  1. PROCRIT [Suspect]
     Indication: MYELODYSPLASTIC SYNDROME
     Dates: start: 20050101
  2. LASIX [Concomitant]
  3. NEURONTIN [Concomitant]
  4. VITAMINS NOS [Concomitant]
  5. UNSPECIFIED ANTIHYPERTENSIVE AGENT [Concomitant]
  6. UNSPECIFIED GASTROINTESTINAL AGENT [Concomitant]
  7. UNSPECIFIED MEDICATION [Concomitant]

REACTIONS (6)
  - BONE PAIN [None]
  - FEELING ABNORMAL [None]
  - INFLUENZA LIKE ILLNESS [None]
  - NEUROPATHY PERIPHERAL [None]
  - OEDEMA PERIPHERAL [None]
  - WHITE BLOOD CELL COUNT ABNORMAL [None]
